FAERS Safety Report 7298987-5 (Version None)
Quarter: 2011Q1

REPORT INFORMATION
  Report Type: 
  Country: None (occurrence: None)
  Receive Date: 20110217
  Receipt Date: 20110209
  Transmission Date: 20110831
  Serious: Yes (Other)
  Sender: FDA-Public Use
  Company Number: JP-B.I. PHARMACEUTICALS,INC./RIDGEFIELD-2011-BP-02409NB

PATIENT

DRUGS (2)
  1. MICARDIS [Suspect]
     Dosage: 20 MG
     Route: 048
  2. ACARDI [Concomitant]
     Dosage: 1.25 MG
     Route: 048

REACTIONS (1)
  - INTERSTITIAL LUNG DISEASE [None]
